FAERS Safety Report 9387972 (Version 3)
Quarter: 2013Q3

REPORT INFORMATION
  Report Type: Spontaneous
  Country: US (occurrence: US)
  Receive Date: 20130708
  Receipt Date: 20130812
  Transmission Date: 20140515
  Serious: Yes (Life-Threatening, Hospitalization, Other)
  Sender: FDA-Public Use
  Company Number: US-ELI_LILLY_AND_COMPANY-US201307001269

PATIENT
  Age: 44 Year
  Sex: Male

DRUGS (2)
  1. ADCIRCA [Suspect]
     Indication: PULMONARY ARTERIAL HYPERTENSION
     Dosage: 40 MG, QD
     Dates: start: 20130521
  2. EPOPROSTENOL [Concomitant]
     Dosage: UNK
     Dates: end: 20130630

REACTIONS (6)
  - Cardiac arrest [Unknown]
  - Abnormal behaviour [Not Recovered/Not Resolved]
  - Suicidal ideation [Unknown]
  - Localised infection [Not Recovered/Not Resolved]
  - Hallucination [Not Recovered/Not Resolved]
  - Aggression [Unknown]
